FAERS Safety Report 8913983 (Version 1)
Quarter: 2012Q4

REPORT INFORMATION
  Report Type: 
  Country: FR (occurrence: FR)
  Receive Date: 20121119
  Receipt Date: 20121119
  Transmission Date: 20130627
  Serious: Yes (Hospitalization)
  Sender: FDA-Public Use
  Company Number: FR-GE HEALTHCARE MEDICAL DIAGNOSTICS-VISP-NO-1211S-0524

PATIENT
  Age: 73 Year
  Sex: Male

DRUGS (7)
  1. VISIPAQUE [Suspect]
     Indication: PRODUCT USED FOR UNKNOWN INDICATION
     Dosage: dose not reported
     Route: 050
     Dates: start: 20120314, end: 20120314
  2. BISOPROLOL [Suspect]
  3. ISOSORBIDE DINITRATE [Suspect]
  4. STAGID [Concomitant]
  5. ASPEGIC [Concomitant]
  6. ALLOPURINOL [Concomitant]
  7. INEGY [Concomitant]

REACTIONS (2)
  - Hypotension [Recovered/Resolved]
  - Malaise [Recovered/Resolved]
